FAERS Safety Report 7265625-7 (Version None)
Quarter: 2011Q1

REPORT INFORMATION
  Report Type: 
  Country: None (occurrence: None)
  Receive Date: 20110131
  Receipt Date: 20101215
  Transmission Date: 20110831
  Serious: Yes (Hospitalization)
  Sender: FDA-Public Use
  Company Number: US-BAYER-201033844NA

PATIENT
  Sex: Female
  Weight: 104.31 kg

DRUGS (10)
  1. AMOXICILLIN [Concomitant]
     Dosage: 500 MG, UNK
     Dates: start: 20070423
  2. PROZAC [Concomitant]
  3. CLINDAMYCIN [Concomitant]
     Dosage: 150 MG, UNK
     Dates: start: 20070518
  4. HYDROCODONE BITARTRATE + ACETAMINOPHEN [Concomitant]
     Dosage: 500 MG, UNK
     Dates: start: 20070425
  5. YAZ [Suspect]
     Indication: PRODUCT USED FOR UNKNOWN INDICATION
     Dosage: UNK UNK, UNK
     Route: 048
  6. YASMIN [Suspect]
     Indication: ACNE
     Route: 048
     Dates: start: 20070301, end: 20070801
  7. FLUOXETINE HCL [Concomitant]
     Indication: MOOD SWINGS
  8. IBUPROFEN [Concomitant]
     Dosage: AS NEEDED
  9. FLUOXETINE HCL [Concomitant]
     Indication: ANXIETY
     Dosage: 40 MG, DAILY
     Dates: start: 20030101, end: 20100101
  10. SINGULAIR [Concomitant]
     Dosage: 10 MG, DAILY
     Dates: start: 20070601

REACTIONS (3)
  - CHEST PAIN [None]
  - PULMONARY EMBOLISM [None]
  - DYSPNOEA [None]
